FAERS Safety Report 15129132 (Version 1)
Quarter: 2018Q3

REPORT INFORMATION
  Report Type: Spontaneous
  Country: US (occurrence: US)
  Receive Date: 20180711
  Receipt Date: 20180711
  Transmission Date: 20181010
  Serious: No
  Sender: FDA-Public Use
  Company Number: US-PFIZER INC-2018275029

PATIENT
  Age: 58 Year
  Sex: Female

DRUGS (3)
  1. OCREVUS [Concomitant]
     Active Substance: OCRELIZUMAB
     Dosage: UNK
  2. SOLU?MEDROL [Suspect]
     Active Substance: METHYLPREDNISOLONE SODIUM SUCCINATE
     Indication: INFLAMMATION
     Dosage: UNK
  3. BENADRYL [Concomitant]
     Active Substance: DIPHENHYDRAMINE HYDROCHLORIDE
     Dosage: UNK

REACTIONS (2)
  - Condition aggravated [Unknown]
  - Oedema [Unknown]
